FAERS Safety Report 19677774 (Version 1)
Quarter: 2021Q3

REPORT INFORMATION
  Report Type: Spontaneous
  Country: CN (occurrence: CN)
  Receive Date: 20210809
  Receipt Date: 20210809
  Transmission Date: 20211014
  Serious: Yes (Hospitalization)
  Sender: FDA-Public Use
  Company Number: CN-PFIZER INC-202100978256

PATIENT
  Age: 39 Year
  Sex: Female

DRUGS (3)
  1. CYTARABINE. [Suspect]
     Active Substance: CYTARABINE
     Indication: ACUTE LYMPHOCYTIC LEUKAEMIA
     Dosage: 0.05 G, 1X/DAY
     Route: 037
     Dates: start: 20210708, end: 20210708
  2. SODIUM CHLORIDE. [Concomitant]
     Active Substance: SODIUM CHLORIDE
     Indication: ACUTE LYMPHOCYTIC LEUKAEMIA
     Dosage: 6 ML, 1X/DAY
     Route: 037
     Dates: start: 20210708, end: 20210708
  3. METHOTREXATE. [Suspect]
     Active Substance: METHOTREXATE
     Indication: ACUTE LYMPHOCYTIC LEUKAEMIA
     Dosage: 5 MG, 1X/DAY
     Route: 037
     Dates: start: 20210708, end: 20210708

REACTIONS (1)
  - Blood count abnormal [Not Recovered/Not Resolved]

NARRATIVE: CASE EVENT DATE: 20210712
